FAERS Safety Report 17597204 (Version 2)
Quarter: 2020Q2

REPORT INFORMATION
  Report Type: Report from Study
  Country: IT (occurrence: IT)
  Receive Date: 20200330
  Receipt Date: 20200426
  Transmission Date: 20200713
  Serious: Yes (Hospitalization)
  Sender: FDA-Public Use
  Company Number: IT-ACCORD-177561

PATIENT
  Age: 70 Year
  Sex: Female

DRUGS (11)
  1. COLCHICINE LIRCA [Interacting]
     Active Substance: COLCHICINE
     Indication: ARTHRITIS
     Dosage: STRENGTH: 1 MG
     Route: 048
  2. GLUCOPHAGE [Concomitant]
     Active Substance: METFORMIN HYDROCHLORIDE
  3. FOLIC ACID. [Concomitant]
     Active Substance: FOLIC ACID
  4. ALLOPURINOL. [Suspect]
     Active Substance: ALLOPURINOL
     Indication: GOUT
     Route: 048
  5. LAMIVUDINE. [Concomitant]
     Active Substance: LAMIVUDINE
  6. DOBETIN [Concomitant]
     Dosage: STRENGTH: 500 MICROGRAMS / ML
  7. ROSUVASTATIN CALCIUM. [Concomitant]
     Active Substance: ROSUVASTATIN CALCIUM
  8. PLAUNAC [Concomitant]
     Active Substance: OLMESARTAN MEDOXOMIL
     Dosage: STRENGTH: 40 MG
  9. RETACRIT [Concomitant]
     Active Substance: EPOETIN ALFA-EPBX
     Dosage: STRENGTH: 3 000 IU/0.9 ML
  10. NEBIVOLOL. [Concomitant]
     Active Substance: NEBIVOLOL
  11. OMEPRAZOLE. [Concomitant]
     Active Substance: OMEPRAZOLE

REACTIONS (5)
  - Drug interaction [Unknown]
  - Anaemia [Recovering/Resolving]
  - Tremor [Recovering/Resolving]
  - Dyspnoea [Recovering/Resolving]
  - Hyperpyrexia [Recovering/Resolving]

NARRATIVE: CASE EVENT DATE: 20191202
